FAERS Safety Report 20365418 (Version 1)
Quarter: 2022Q1

REPORT INFORMATION
  Report Type: Spontaneous
  Country: US (occurrence: US)
  Receive Date: 20220122
  Receipt Date: 20220122
  Transmission Date: 20220423
  Serious: Yes (Hospitalization, Other)
  Sender: FDA-Public Use
  Company Number: US-AMGEN-USASP2022005473

PATIENT

DRUGS (1)
  1. BEVACIZUMAB [Suspect]
     Active Substance: BEVACIZUMAB
     Indication: Ovarian cancer
     Dosage: UNK
     Route: 065

REACTIONS (12)
  - Renal impairment [Unknown]
  - Embolism arterial [Unknown]
  - Myocardial infarction [Unknown]
  - Posterior reversible encephalopathy syndrome [Unknown]
  - Mucocutaneous haemorrhage [Unknown]
  - Embolism venous [Unknown]
  - Unevaluable event [Unknown]
  - Wound dehiscence [Unknown]
  - Abscess [Unknown]
  - Hypertension [Unknown]
  - Fistula [Unknown]
  - Off label use [Unknown]
